FAERS Safety Report 6647311-7 (Version None)
Quarter: 2010Q1

REPORT INFORMATION
  Report Type: 
  Country: None (occurrence: None)
  Receive Date: 20100323
  Receipt Date: 20100315
  Transmission Date: 20100710
  Serious: Yes (Hospitalization)
  Sender: FDA-Public Use
  Company Number: B0631701A

PATIENT
  Age: 78 Year
  Sex: Male

DRUGS (2)
  1. VALTREX [Suspect]
     Indication: HERPES ZOSTER
     Dosage: 3000MG PER DAY
     Route: 048
  2. ACYCLOVIR SODIUM [Suspect]
     Indication: HERPES ZOSTER
     Dosage: 250MG PER DAY
     Route: 042

REACTIONS (1)
  - NERVOUS SYSTEM DISORDER [None]
